FAERS Safety Report 7994256-6 (Version None)
Quarter: 2011Q4

REPORT INFORMATION
  Report Type: 
  Country: None (occurrence: None)
  Receive Date: 20111220
  Receipt Date: 20111217
  Transmission Date: 20120403
  Serious: Yes (Hospitalization, Other)
  Sender: FDA-Public Use
  Company Number: DE-AMGEN-DEUSP2011052418

PATIENT
  Age: 75 Year
  Sex: Male
  Weight: 91.2 kg

DRUGS (8)
  1. NPLATE [Suspect]
     Indication: IDIOPATHIC THROMBOCYTOPENIC PURPURA
     Dosage: 10 MUG/KG, QWK
     Dates: start: 20110401
  2. RED BLOOD CELLS [Concomitant]
     Indication: HAEMORRHAGE
  3. ALLOPURINOL [Concomitant]
  4. MELOXICAM [Concomitant]
     Dosage: UNK UNK, QD
  5. BENZBROMARON [Concomitant]
     Dosage: 100 MG, QD
  6. EXJADE [Concomitant]
     Dosage: 500 MG, BID
  7. LEVOTHYROXINE SODIUM [Concomitant]
     Dosage: 75 MUG, QD
  8. PANTOZOL                           /01263204/ [Concomitant]
     Dosage: 40 MG, QD

REACTIONS (20)
  - PETECHIAE [None]
  - URINARY TRACT INFECTION BACTERIAL [None]
  - HAEMATOMA [None]
  - PAIN [None]
  - CLOSTRIDIAL INFECTION [None]
  - HAEMORRHAGE SUBCUTANEOUS [None]
  - HOSPITALISATION [None]
  - SMALL INTESTINAL HAEMORRHAGE [None]
  - PYREXIA [None]
  - DRUG INEFFECTIVE [None]
  - HIATUS HERNIA [None]
  - CHILLS [None]
  - DIVERTICULUM INTESTINAL [None]
  - ENTERITIS [None]
  - GASTROINTESTINAL HAEMORRHAGE [None]
  - TRANSFUSION REACTION [None]
  - BONE MARROW RETICULIN FIBROSIS [None]
  - SPINAL OSTEOARTHRITIS [None]
  - PROSTATIC CALCIFICATION [None]
  - OEDEMA PERIPHERAL [None]
